FAERS Safety Report 6816838-7 (Version None)
Quarter: 2010Q3

REPORT INFORMATION
  Report Type: 
  Country: None (occurrence: None)
  Receive Date: 20100706
  Receipt Date: 20100630
  Transmission Date: 20110219
  Serious: Yes (Life-Threatening)
  Sender: FDA-Public Use
  Company Number: GB-JNJFOC-20100601411

PATIENT
  Sex: Female
  Weight: 5.36 kg

DRUGS (3)
  1. DAKTARIN [Suspect]
     Route: 061
  2. DAKTARIN [Suspect]
     Indication: ORAL CANDIDIASIS
     Route: 061
  3. NYSTATIN [Suspect]
     Indication: ORAL CANDIDIASIS
     Route: 065

REACTIONS (4)
  - DRUG PRESCRIBING ERROR [None]
  - HYPERSENSITIVITY [None]
  - PARAESTHESIA ORAL [None]
  - RESPIRATORY ARREST [None]
